FAERS Safety Report 22363161 (Version 1)
Quarter: 2023Q2

REPORT INFORMATION
  Report Type: Spontaneous
  Country: CH (occurrence: CH)
  Receive Date: 20230525
  Receipt Date: 20230525
  Transmission Date: 20230721
  Serious: Yes (Other)
  Sender: FDA-Public Use
  Company Number: CH-002147023-NVSC2023CH058577

PATIENT
  Age: 41 Year
  Sex: Female

DRUGS (1)
  1. ERENUMAB [Suspect]
     Active Substance: ERENUMAB
     Indication: Product used for unknown indication
     Dosage: UNK
     Route: 065

REACTIONS (15)
  - Conjunctival oedema [Unknown]
  - Laryngeal oedema [Unknown]
  - Peripheral swelling [Unknown]
  - Joint swelling [Unknown]
  - Swelling of eyelid [Unknown]
  - Visual impairment [Unknown]
  - Visual field defect [Unknown]
  - Meibomianitis [Unknown]
  - Motion sickness [Unknown]
  - Hypoaesthesia [Unknown]
  - Pain [Unknown]
  - Eye swelling [Unknown]
  - Swelling face [Unknown]
  - Eyelid oedema [Unknown]
  - Drug hypersensitivity [Unknown]
